FAERS Safety Report 10528177 (Version 2)
Quarter: 2015Q1

REPORT INFORMATION
  Report Type: Spontaneous
  Country: US (occurrence: None)
  Receive Date: 20141015
  Receipt Date: 20150225
  Transmission Date: 20150720
  Serious: Yes (Other)
  Sender: FDA-Public Use
  Company Number: DSC201409-000012

PATIENT
  Age: 1 Day
  Sex: Male
  Weight: .89 kg

DRUGS (3)
  1. AMPICILLIN [Concomitant]
     Active Substance: AMPICILLIN
  2. SURFAXIN [Suspect]
     Active Substance: 1-PALMITOYL-2-OLEOYL-SN-GLYCERO-3-(PHOSPHO-RAC-(1-GLYCEROL)), SODIUM SALT\COLFOSCERIL PALMITATE\PALMITIC ACID\SINAPULTIDE
     Indication: RESPIRATORY DISTRESS
     Dosage: 4 EQUAL ALIQUOT OF 1.25 ML
     Dates: start: 20140912
  3. CEFOTAXIME [Concomitant]
     Active Substance: CEFOTAXIME\CEFOTAXIME SODIUM

REACTIONS (4)
  - Pneumothorax [None]
  - Pulmonary interstitial emphysema syndrome [None]
  - Intraventricular haemorrhage neonatal [None]
  - Medical device complication [None]

NARRATIVE: CASE EVENT DATE: 20140912
